FAERS Safety Report 5781572-1 (Version None)
Quarter: 2008Q2

REPORT INFORMATION
  Report Type: 
  Country: None (occurrence: None)
  Receive Date: 20080623
  Receipt Date: 20080609
  Transmission Date: 20081010
  Serious: Yes (Life-Threatening, Hospitalization, Other)
  Sender: FDA-Public Use
  Company Number: GB-JNJFOC-20080602136

PATIENT
  Age: 14 Year
  Sex: Male

DRUGS (8)
  1. DOXORUBICIN HCL [Suspect]
     Indication: B-CELL LYMPHOMA
     Route: 042
  2. CYCLOPHOSPHAMIDE [Suspect]
     Indication: B-CELL LYMPHOMA
     Route: 065
  3. CYTARABINE [Suspect]
     Indication: B-CELL LYMPHOMA
     Route: 065
  4. METHOTREXATE [Suspect]
     Indication: B-CELL LYMPHOMA
     Route: 065
  5. PREDNISOLONE [Suspect]
     Indication: B-CELL LYMPHOMA
     Route: 065
  6. VINCRISTINE [Suspect]
     Indication: B-CELL LYMPHOMA
     Route: 065
  7. MESNA [Concomitant]
     Indication: BLADDER DISORDER
     Route: 065
  8. ANTIHYPERTENSIVE [Concomitant]
     Route: 065

REACTIONS (2)
  - HAEMATURIA [None]
  - TELANGIECTASIA [None]
